FAERS Safety Report 8984306 (Version 1)
Quarter: 2012Q4

REPORT INFORMATION
  Report Type: 
  Country: BR (occurrence: BR)
  Receive Date: 20121226
  Receipt Date: 20121226
  Transmission Date: 20130627
  Serious: Yes (Other)
  Sender: FDA-Public Use
  Company Number: PHHY2012BR109786

PATIENT
  Age: 52 Year
  Sex: Female

DRUGS (6)
  1. FORASEQ [Suspect]
     Indication: BRONCHITIS
     Dosage: 2 DF, Daily
  2. FORADILE [Suspect]
     Indication: BRONCHITIS
     Dosage: 2 DF, Daily
  3. BENICAR HCT [Suspect]
     Indication: HYPERTENSION
     Dosage: 1 DF, QD
     Route: 048
  4. COMADIN [Concomitant]
     Indication: ANTICOAGULANT THERAPY
     Dosage: 1 DF, QD
     Route: 048
  5. VERPAMIL [Concomitant]
     Indication: ARRHYTHMIA
     Dosage: Half tablet in the morning and half tablet at night
  6. MIFLONIDE [Concomitant]
     Indication: BRONCHITIS

REACTIONS (7)
  - Malaise [Recovering/Resolving]
  - Dyspnoea [Recovered/Resolved]
  - Gait disturbance [Recovered/Resolved]
  - Cardiac disorder [Unknown]
  - Heart rate increased [Recovered/Resolved]
  - Hypertension [Unknown]
  - Product taste abnormal [Recovered/Resolved]
